FAERS Safety Report 5656643-0 (Version None)
Quarter: 2008Q1

REPORT INFORMATION
  Report Type: 
  Country: None (occurrence: None)
  Receive Date: 20080310
  Receipt Date: 20080220
  Transmission Date: 20080703
  Serious: Yes (Other)
  Sender: FDA-Public Use
  Company Number: JP-BAYER-200810280BYL

PATIENT
  Age: 73 Year
  Sex: Male

DRUGS (2)
  1. ADALAT [Suspect]
     Dosage: TOTAL DAILY DOSE: 40 MG  UNIT DOSE: 40 MG
     Route: 048
     Dates: start: 20031127, end: 20080116
  2. DIOVAN [Concomitant]
     Route: 048

REACTIONS (1)
  - PURPURA [None]
